FAERS Safety Report 9506055 (Version 1)
Quarter: 2013Q1

REPORT INFORMATION
  Report Type: Spontaneous
  Country: US (occurrence: None)
  Receive Date: 20130305
  Receipt Date: 20130305
  Transmission Date: 20140127
  Serious: Yes (Hospitalization)
  Sender: FDA-Public Use
  Company Number: 163-21880-12052471

PATIENT
  Age: 55 Year
  Sex: Female

DRUGS (3)
  1. REVLIMID (LENALIDOMIDE) (CAPSULES) [Suspect]
     Indication: PLASMA CELL MYELOMA
     Dosage: 25 MG, CAPSULE, 21 IN 21 D, PO
     Dates: start: 20120406, end: 20120516
  2. ASPIRIN (ACETYLSALICYLIC ACID) [Concomitant]
  3. DULCOLAX (BISACODYL) [Concomitant]

REACTIONS (2)
  - Dyspnoea [None]
  - Petechiae [None]
